FAERS Safety Report 4437425-4 (Version None)
Quarter: 2004Q3

REPORT INFORMATION
  Report Type: 
  Country: None (occurrence: None)
  Receive Date: 20040827
  Receipt Date: 20040728
  Transmission Date: 20050211
  Serious: No
  Sender: FDA-Public Use
  Company Number: BRO-007655

PATIENT
  Age: 52 Year
  Sex: Female

DRUGS (1)
  1. IOPAMIDOL [Suspect]
     Indication: COMPUTERISED TOMOGRAM
     Dosage: 80 ML IV
     Route: 042
     Dates: start: 20040712, end: 20040712

REACTIONS (1)
  - DYSPNOEA [None]
